FAERS Safety Report 10542338 (Version 1)
Quarter: 2014Q4

REPORT INFORMATION
  Report Type: Spontaneous
  Country: CZ (occurrence: CZ)
  Receive Date: 20141024
  Receipt Date: 20141024
  Transmission Date: 20150529
  Serious: Yes (Hospitalization)
  Sender: FDA-Public Use
  Company Number: PHHY2014CZ134329

PATIENT
  Age: 26 Year
  Sex: Female

DRUGS (2)
  1. SULFAMETHOXAZOLE+TRIMETHOPRIM SANDOZ [Suspect]
     Active Substance: SULFAMETHOXAZOLE\TRIMETHOPRIM
     Indication: PHARYNGITIS
     Dosage: 1 DF, QD
     Route: 065
  2. TOPIRAMATE. [Suspect]
     Active Substance: TOPIRAMATE
     Indication: MIGRAINE PROPHYLAXIS
     Dosage: 1 DF, QD
     Route: 048

REACTIONS (11)
  - Headache [Unknown]
  - Ciliary body disorder [Unknown]
  - Intraocular pressure increased [Unknown]
  - Flat anterior chamber of eye [Unknown]
  - Myopia [Recovered/Resolved]
  - Visual acuity reduced [Unknown]
  - Corneal oedema [Unknown]
  - Vomiting [Unknown]
  - Mydriasis [Unknown]
  - Conjunctival hyperaemia [Unknown]
  - Paraesthesia [Unknown]
